FAERS Safety Report 13747938 (Version 1)
Quarter: 2017Q3

REPORT INFORMATION
  Report Type: Report from Study
  Country: None (occurrence: US)
  Receive Date: 20170713
  Receipt Date: 20170713
  Transmission Date: 20171127
  Serious: Yes (Other)
  Sender: FDA-Public Use
  Company Number: US-ABBVIE-17K-163-2033020-00

PATIENT
  Sex: Female

DRUGS (1)
  1. HUMIRA [Suspect]
     Active Substance: ADALIMUMAB
     Indication: COLITIS ULCERATIVE
     Route: 058

REACTIONS (7)
  - Intestinal perforation [Unknown]
  - Diarrhoea [Unknown]
  - Stress [Recovering/Resolving]
  - Drug effect incomplete [Unknown]
  - Hysterectomy [Unknown]
  - Colitis ulcerative [Recovering/Resolving]
  - Hernia [Unknown]

NARRATIVE: CASE EVENT DATE: 2004
